FAERS Safety Report 5676594-5 (Version None)
Quarter: 2008Q1

REPORT INFORMATION
  Report Type: 
  Country: None (occurrence: None)
  Receive Date: 20080320
  Receipt Date: 20080320
  Transmission Date: 20080703
  Serious: Yes (Hospitalization)
  Sender: FDA-Public Use
  Company Number: None

PATIENT
  Age: 56 Year
  Sex: Male
  Weight: 63.9 kg

DRUGS (2)
  1. RATG ANTITHYMOCYTE GLOBULIN [Suspect]
     Indication: MULTIPLE MYELOMA
     Dosage: 6 MG/KG X4 DAYS IV DRIP
     Route: 041
     Dates: start: 20080211, end: 20080214
  2. RAPAMYCIN [Suspect]
     Dosage: 1 MG X30 DAYS PO
     Route: 048
     Dates: start: 20080211, end: 20080311

REACTIONS (3)
  - CHEST PAIN [None]
  - PNEUMONIA [None]
  - PRODUCTIVE COUGH [None]
